FAERS Safety Report 25915415 (Version 1)
Quarter: 2025Q4

REPORT INFORMATION
  Report Type: Report from Study
  Country: US (occurrence: US)
  Receive Date: 20251013
  Receipt Date: 20251013
  Transmission Date: 20260118
  Serious: Yes (Hospitalization)
  Sender: TAIHO ONCOLOGY INC
  Company Number: US-TAIHOP-2025-010845

PATIENT
  Sex: Female

DRUGS (1)
  1. INQOVI [Suspect]
     Active Substance: CEDAZURIDINE\DECITABINE
     Indication: Myelodysplastic syndrome with multilineage dysplasia
     Dosage: DECITABINE 35 MG + CEDAZURIDINE 100 MG?CYCLE: UNKNOWN.
     Route: 048
     Dates: start: 202410

REACTIONS (1)
  - Cytopenia [Unknown]
